FAERS Safety Report 17450288 (Version 1)
Quarter: 2020Q1

REPORT INFORMATION
  Report Type: Spontaneous
  Country: RU (occurrence: MY)
  Receive Date: 20200224
  Receipt Date: 20200224
  Transmission Date: 20200409
  Serious: Yes (Congenital Anomaly, Other)
  Sender: FDA-Public Use
  Company Number: MY-TEVA-2020-MY-1190074

PATIENT
  Age: 3 Month
  Sex: Female
  Weight: 5.1 kg

DRUGS (2)
  1. VALPROIC ACID. [Suspect]
     Active Substance: VALPROIC ACID
     Indication: EPILEPSY
     Dosage: 800 MILLIGRAM DAILY; MOTHER RECEIVING SINCE 15 YEARS, CONTINUED THROUGHOUT PREGNANCY
     Route: 064
  2. FOLATE [Suspect]
     Active Substance: FOLATE SODIUM
     Dosage: 800 MILLIGRAM DAILY;
     Route: 064

REACTIONS (2)
  - Foetal anticonvulsant syndrome [Unknown]
  - Foetal exposure during pregnancy [Unknown]
